FAERS Safety Report 5782411-5 (Version None)
Quarter: 2008Q2

REPORT INFORMATION
  Report Type: 
  Country: None (occurrence: None)
  Receive Date: 20080623
  Receipt Date: 20080609
  Transmission Date: 20081010
  Serious: Yes (Other)
  Sender: FDA-Public Use
  Company Number: PHHY2008JP10954

PATIENT
  Sex: Female

DRUGS (1)
  1. PABRON NASAL INFECTION CAPSULE [Suspect]
     Indication: RHINITIS ALLERGIC
     Dosage: UNK
     Route: 048
     Dates: start: 20080501

REACTIONS (8)
  - DIARRHOEA [None]
  - EYELID OEDEMA [None]
  - FACE OEDEMA [None]
  - HAEMATURIA [None]
  - HYPERSENSITIVITY [None]
  - MALAISE [None]
  - POLLAKIURIA [None]
  - SOMNOLENCE [None]
